FAERS Safety Report 25851087 (Version 1)
Quarter: 2025Q3

REPORT INFORMATION
  Report Type: Spontaneous
  Country: US (occurrence: US)
  Receive Date: 20250926
  Receipt Date: 20250926
  Transmission Date: 20251020
  Serious: No
  Sender: ALEXION PHARMACEUTICALS
  Company Number: US-AstraZeneca-CH-00956890A

PATIENT
  Sex: Female

DRUGS (2)
  1. VOYDEYA [Interacting]
     Active Substance: DANICOPAN
     Indication: Vessel harvesting
  2. ULTOMIRIS [Interacting]
     Active Substance: RAVULIZUMAB-CWVZ
     Indication: Paroxysmal nocturnal haemoglobinuria
     Route: 065

REACTIONS (1)
  - Drug interaction [Unknown]
